FAERS Safety Report 4819558-3 (Version None)
Quarter: 2005Q4

REPORT INFORMATION
  Report Type: 
  Country: None (occurrence: None)
  Receive Date: 20051102
  Receipt Date: 20051102
  Transmission Date: 20060501
  Serious: Yes (Hospitalization)
  Sender: FDA-Public Use
  Company Number: None

PATIENT
  Age: 72 Year
  Sex: Male

DRUGS (1)
  1. WARFARIN [Suspect]
     Dosage: 5MG PO QD
     Route: 048

REACTIONS (2)
  - HEADACHE [None]
  - POST PROCEDURAL HAEMORRHAGE [None]
